FAERS Safety Report 5403210-X (Version None)
Quarter: 2007Q3

REPORT INFORMATION
  Report Type: 
  Country: None (occurrence: None)
  Receive Date: 20070730
  Receipt Date: 20070709
  Transmission Date: 20080115
  Serious: Yes (Other)
  Sender: FDA-Public Use
  Company Number: 5502 / 6035576

PATIENT
  Age: 37 Year
  Sex: Male

DRUGS (1)
  1. AMLODIPINE [Suspect]

REACTIONS (5)
  - ACIDOSIS [None]
  - BRADYCARDIA [None]
  - HYPOTENSION [None]
  - OVERDOSE [None]
  - SHOCK [None]
